FAERS Safety Report 9132214 (Version 1)
Quarter: 2013Q1

REPORT INFORMATION
  Report Type: Spontaneous
  Country: US (occurrence: US)
  Receive Date: 20130107
  Receipt Date: 20130107
  Transmission Date: 20140127
  Serious: No
  Sender: FDA-Public Use
  Company Number: US-ASTRAZENECA-2012SE96277

PATIENT
  Age: 61 Year
  Sex: Male
  Weight: 71.2 kg

DRUGS (15)
  1. NEXIUM [Suspect]
     Route: 048
  2. FOLIC ACID [Concomitant]
     Indication: VITAMIN SUPPLEMENTATION
  3. POTASSIUM SUPPLEMENTS [Concomitant]
     Indication: MINERAL SUPPLEMENTATION
  4. CALCIUM [Concomitant]
     Indication: MINERAL SUPPLEMENTATION
  5. HUMIRA [Concomitant]
     Indication: ARTHRITIS
     Dosage: 10MG/40 ML, EVERY TWO WEEKS
     Route: 050
  6. HYDROCODONE [Concomitant]
     Indication: PAIN
  7. FLEXERIL [Concomitant]
     Indication: PAIN
  8. AMBIEN CR [Concomitant]
     Indication: SLEEP DISORDER
  9. METOPROLOL TARTRATE [Concomitant]
     Indication: BLOOD PRESSURE ABNORMAL
  10. VULTURIN [Concomitant]
     Indication: ANALGESIC THERAPY
  11. LEFLUMIDE [Concomitant]
     Indication: ARTHRITIS
  12. ZETIA [Concomitant]
     Indication: BLOOD CHOLESTEROL ABNORMAL
  13. LIPITOR [Concomitant]
     Indication: BLOOD CHOLESTEROL ABNORMAL
  14. ALTACE [Concomitant]
     Indication: BLOOD PRESSURE ABNORMAL
  15. XYZEL [Concomitant]
     Indication: MULTIPLE ALLERGIES

REACTIONS (3)
  - Bone density decreased [Unknown]
  - Gastrooesophageal reflux disease [Unknown]
  - Drug dose omission [Unknown]
